FAERS Safety Report 25312194 (Version 1)
Quarter: 2025Q2

REPORT INFORMATION
  Report Type: Spontaneous
  Country: US (occurrence: US)
  Receive Date: 20250510
  Receipt Date: 20250510
  Transmission Date: 20250716
  Serious: Yes (Hospitalization, Other)
  Sender: NOVO NORDISK
  Company Number: US-NOVOPROD-1387463

PATIENT
  Age: 48 Year
  Sex: Female
  Weight: 113.38 kg

DRUGS (2)
  1. OZEMPIC [Suspect]
     Active Substance: SEMAGLUTIDE
     Indication: Type 2 diabetes mellitus
     Dosage: 2.5 MG, QW
     Dates: start: 20220808, end: 20231101
  2. VIT D [VITAMIN D NOS] [Concomitant]
     Indication: Vitamin D deficiency
     Dates: start: 20200101

REACTIONS (5)
  - Intestinal perforation [Not Recovered/Not Resolved]
  - Colostomy [Not Recovered/Not Resolved]
  - Depression [Not Recovered/Not Resolved]
  - Self esteem decreased [Not Recovered/Not Resolved]
  - Off label use [Unknown]

NARRATIVE: CASE EVENT DATE: 20220808
